FAERS Safety Report 16676810 (Version 4)
Quarter: 2019Q3

REPORT INFORMATION
  Report Type: Spontaneous
  Country: DE (occurrence: DE)
  Receive Date: 20190807
  Receipt Date: 20190913
  Transmission Date: 20191004
  Serious: Yes (Hospitalization)
  Sender: FDA-Public Use
  Company Number: DE-AUROBINDO-AUR-APL-2019-046315

PATIENT
  Sex: Female
  Weight: 65 kg

DRUGS (6)
  1. LETROZOLE. [Suspect]
     Active Substance: LETROZOLE
     Dosage: 2.5 MILLIGRAM, ONCE A DAY
     Route: 048
     Dates: start: 20190723
  2. LETROZOLE. [Suspect]
     Active Substance: LETROZOLE
     Dosage: UNK
     Route: 065
     Dates: start: 20190719
  3. LETROZOLE. [Suspect]
     Active Substance: LETROZOLE
     Dosage: 2.5 MILLIGRAM, ONCE A DAY
     Route: 048
     Dates: start: 20190711
  4. KISQALI [Suspect]
     Active Substance: RIBOCICLIB
     Indication: BREAST CANCER METASTATIC
     Dosage: 600 MILLIGRAM, ONCE A DAY
     Route: 065
     Dates: start: 20190723
  5. LETROZOLE. [Suspect]
     Active Substance: LETROZOLE
     Indication: BREAST CANCER METASTATIC
     Dosage: 2.5 MILLIGRAM, ONCE A DAY
     Route: 048
     Dates: start: 20190624
  6. KISQALI [Suspect]
     Active Substance: RIBOCICLIB
     Dosage: 600 MILLIGRAM, ONCE A DAY
     Route: 065
     Dates: start: 20190731

REACTIONS (7)
  - Dehydration [Recovered/Resolved]
  - Liver disorder [Unknown]
  - Hypocalcaemia [Not Recovered/Not Resolved]
  - Erysipelas [Recovered/Resolved]
  - Nausea [Recovered/Resolved]
  - Thrombosis [Unknown]
  - Erythema [Unknown]

NARRATIVE: CASE EVENT DATE: 20190711
